FAERS Safety Report 4880186-5 (Version None)
Quarter: 2006Q1

REPORT INFORMATION
  Report Type: 
  Country: None (occurrence: None)
  Receive Date: 20060111
  Receipt Date: 20051202
  Transmission Date: 20060701
  Serious: Yes (Hospitalization)
  Sender: FDA-Public Use
  Company Number: 2006BI000219

PATIENT
  Age: 43 Year
  Sex: Female

DRUGS (4)
  1. AVONEX [Suspect]
     Indication: MULTIPLE SCLEROSIS
     Dosage: IM
     Route: 030
     Dates: start: 20020117
  2. AVONEX [Suspect]
     Indication: MULTIPLE SCLEROSIS
     Dosage: IM
     Route: 030
  3. AVONEX [Suspect]
     Indication: MULTIPLE SCLEROSIS
     Dosage: IM
     Route: 030
  4. ANTIBIOTICS [Concomitant]

REACTIONS (14)
  - ASTHENIA [None]
  - BLADDER DISORDER [None]
  - BRONCHITIS [None]
  - CONDITION AGGRAVATED [None]
  - CONFUSIONAL STATE [None]
  - FALL [None]
  - GASTROINTESTINAL FUNGAL INFECTION [None]
  - HEARING IMPAIRED [None]
  - HYPOTENSION [None]
  - MIGRAINE [None]
  - MULTIPLE SCLEROSIS [None]
  - STOMACH DISCOMFORT [None]
  - VULVOVAGINAL MYCOTIC INFECTION [None]
  - WRONG DRUG ADMINISTERED [None]
